FAERS Safety Report 15394947 (Version 2)
Quarter: 2019Q3

REPORT INFORMATION
  Report Type: Report from Study
  Country: US (occurrence: US)
  Receive Date: 20180918
  Receipt Date: 20190812
  Transmission Date: 20191004
  Serious: No
  Sender: FDA-Public Use
  Company Number: PHHY2018US100473

PATIENT
  Sex: Male

DRUGS (3)
  1. ILARIS [Suspect]
     Active Substance: CANAKINUMAB
     Indication: CRYOPYRIN ASSOCIATED PERIODIC SYNDROME
     Dosage: 90 MG, EVERY 8 WEEKS
     Route: 058
  2. ILARIS [Suspect]
     Active Substance: CANAKINUMAB
     Dosage: UNK
     Route: 065
     Dates: start: 20180622
  3. ILARIS [Suspect]
     Active Substance: CANAKINUMAB
     Dosage: 120 MG, EVERY 8 WEEKS
     Route: 065

REACTIONS (1)
  - Inappropriate schedule of product administration [Unknown]
